FAERS Safety Report 16596433 (Version 1)
Quarter: 2019Q3

REPORT INFORMATION
  Report Type: Spontaneous
  Country: US (occurrence: US)
  Receive Date: 20190719
  Receipt Date: 20190719
  Transmission Date: 20191004
  Serious: Yes (Hospitalization)
  Sender: FDA-Public Use
  Company Number: US-GW PHARMA-201907USGW2390

PATIENT

DRUGS (5)
  1. LATUDA [Concomitant]
     Active Substance: LURASIDONE HYDROCHLORIDE
     Indication: PRODUCT USED FOR UNKNOWN INDICATION
     Dosage: UNK
     Route: 065
  2. CLONAZEPAM. [Concomitant]
     Active Substance: CLONAZEPAM
     Indication: PRODUCT USED FOR UNKNOWN INDICATION
     Dosage: UNK
     Route: 065
  3. EPIDIOLEX [Suspect]
     Active Substance: CANNABIDIOL
     Dosage: 10.37 MG/KG, 360 MILLIGRAM, BID
     Route: 048
     Dates: start: 20190704
  4. EPIDIOLEX [Suspect]
     Active Substance: CANNABIDIOL
     Indication: LENNOX-GASTAUT SYNDROME
     Dosage: 11.24 MG/KG, 390 MILLIGRAM, BID
     Route: 048
     Dates: start: 20190306, end: 201907
  5. TOPAMAX [Concomitant]
     Active Substance: TOPIRAMATE
     Indication: PRODUCT USED FOR UNKNOWN INDICATION
     Dosage: UNK
     Route: 065

REACTIONS (7)
  - Ligament sprain [Unknown]
  - Dyskinesia [Unknown]
  - Abnormal behaviour [Unknown]
  - Dehydration [Unknown]
  - Feeding disorder [Unknown]
  - Insomnia [Unknown]
  - Aggression [Unknown]

NARRATIVE: CASE EVENT DATE: 2019
